FAERS Safety Report 15656643 (Version 2)
Quarter: 2020Q1

REPORT INFORMATION
  Report Type: Report from Study
  Country: ZA (occurrence: ZA)
  Receive Date: 20181126
  Receipt Date: 20200109
  Transmission Date: 20200409
  Serious: Yes (Life-Threatening, Hospitalization, Other)
  Sender: FDA-Public Use
  Company Number: ZA-SAKK-2018SA253187AA

PATIENT
  Age: 35 Year
  Sex: Female

DRUGS (8)
  1. INSULIN GLARGINE [Suspect]
     Active Substance: INSULIN GLARGINE
     Dosage: 23 IU, BID (BREAKFAST AND NIGHT TIME DOSE)
     Dates: start: 20180612
  2. GLUCOPHAGE [Concomitant]
     Active Substance: METFORMIN HYDROCHLORIDE
     Dosage: 1000 MG, QD (BEFORE BREAKFAST)
     Dates: start: 20140101
  3. CIRCADIN [Concomitant]
     Active Substance: MELATONIN
     Dosage: 2 MG, QD (BEDTIME)
     Dates: start: 20140101
  4. DIAGLUCIDE [Concomitant]
     Active Substance: GLICLAZIDE
     Dosage: 80 MG, BID (BEFORE BREAKFAST AND BEFORE SUPPER)
     Dates: start: 20140101
  5. AMLOC [AMLODIPINE BESILATE] [Concomitant]
     Active Substance: AMLODIPINE BESYLATE
     Dosage: 10 MG, QD (BEFORE BREAKFAST)
     Dates: start: 20140101
  6. RIDAQ [Concomitant]
     Active Substance: HYDROCHLOROTHIAZIDE
     Dosage: 25 MG, QD (BEFORE BREAKFAST)
     Dates: start: 20140101
  7. INSULIN GLARGINE [Suspect]
     Active Substance: INSULIN GLARGINE
     Indication: TYPE 2 DIABETES MELLITUS
     Dosage: BEFORE BREAKFAST - 40 IU AND AT BEDTIME - 25 IU, BID
     Dates: start: 20180608
  8. LISINOPRIL CO UNICORN [Concomitant]
     Dosage: 20 MG, QD (BEFORE BREAKFAST)
     Dates: start: 20140101

REACTIONS (3)
  - Off label use [Unknown]
  - Diarrhoea [Not Recovered/Not Resolved]
  - Diabetes mellitus inadequate control [Not Recovered/Not Resolved]

NARRATIVE: CASE EVENT DATE: 20181119
